FAERS Safety Report 15773363 (Version 2)
Quarter: 2019Q1

REPORT INFORMATION
  Report Type: Report from Study
  Country: DK (occurrence: DK)
  Receive Date: 20181228
  Receipt Date: 20190109
  Transmission Date: 20190417
  Serious: Yes (Death, Hospitalization)
  Sender: FDA-Public Use
  Company Number: DK-GILEAD-2018-0381844

PATIENT
  Age: 80 Year
  Sex: Male

DRUGS (15)
  1. HJERTEMAGNYL [ACETYLSALICYLIC ACID] [Concomitant]
  2. PROJEKTMEDICIN DIV [Concomitant]
  3. IDELALISIB [Suspect]
     Active Substance: IDELALISIB
     Indication: DIFFUSE LARGE B-CELL LYMPHOMA REFRACTORY
     Dosage: UNK
     Route: 065
     Dates: start: 20181106, end: 20181124
  4. UNIKALK FORTE [Concomitant]
  5. NATURMEDICIN DIV [Concomitant]
  6. INSUMAN RAPID [Concomitant]
     Active Substance: INSULIN HUMAN
  7. TOLTERODIN STADA [Concomitant]
  8. TRESIBA [Concomitant]
     Active Substance: INSULIN DEGLUDEC
  9. IMOZOP [Concomitant]
     Active Substance: ZOPICLONE
  10. PREDNISOLON ^DLF^ [Concomitant]
     Active Substance: PREDNISOLONE
  11. ALLOPURINOL. [Concomitant]
     Active Substance: ALLOPURINOL
  12. PANTOPRAZOLE TEVA [Concomitant]
     Active Substance: PANTOPRAZOLE SODIUM
  13. PINEX [DEXTROMETHORPHAN HYDROBROMIDE] [Concomitant]
  14. METFORMIN AUROBINDO [Concomitant]
     Active Substance: METFORMIN HYDROCHLORIDE
  15. HUMAN ALBUMIN CSL BEHRING [Concomitant]
     Active Substance: ALBUMIN HUMAN

REACTIONS (1)
  - Dehydration [Fatal]

NARRATIVE: CASE EVENT DATE: 20181122
